FAERS Safety Report 4433306-0 (Version None)
Quarter: 2004Q3

REPORT INFORMATION
  Report Type: 
  Country: None (occurrence: None)
  Receive Date: 20040818
  Receipt Date: 20030209
  Transmission Date: 20050211
  Serious: Yes (Other)
  Sender: FDA-Public Use
  Company Number: 601102

PATIENT
  Age: 69 Year
  Sex: Male
  Weight: 80 kg

DRUGS (4)
  1. FEIBA VH IMMUNO [Suspect]
     Indication: HAEMORRHAGE
     Dosage: 3000 UNITS; ONCE; INTRAVENOUS
     Route: 042
     Dates: start: 20040130, end: 20040130
  2. CARBAZOCHROME SODIUM SULFONATE [Concomitant]
  3. TRANEXAMIC ACID [Concomitant]
  4. SOLITA-T 3G [Concomitant]

REACTIONS (5)
  - BLOOD PRESSURE DECREASED [None]
  - DRUG HYPERSENSITIVITY [None]
  - DYSPNOEA [None]
  - INFUSION RELATED REACTION [None]
  - OXYGEN SATURATION DECREASED [None]
